FAERS Safety Report 6345991-7 (Version None)
Quarter: 2009Q3

REPORT INFORMATION
  Report Type: 
  Country: None (occurrence: None)
  Receive Date: 20090909
  Receipt Date: 20090826
  Transmission Date: 20100115
  Serious: Yes (Other)
  Sender: FDA-Public Use
  Company Number: FR-AMGEN-US362564

PATIENT
  Sex: Female

DRUGS (1)
  1. ENBREL [Suspect]
     Indication: PSORIASIS
     Dosage: UNKNOWN; 2 CONSECUTIVE CYCLES OF 6-MONTH-DURATION EACH
     Route: 058
     Dates: start: 20070101, end: 20080101

REACTIONS (1)
  - AUTOIMMUNE THROMBOCYTOPENIA [None]
